FAERS Safety Report 5425595-0 (Version None)
Quarter: 2007Q3

REPORT INFORMATION
  Report Type: 
  Country: None (occurrence: None)
  Receive Date: 20070731
  Receipt Date: 20070404
  Transmission Date: 20080115
  Serious: No
  Sender: FDA-Public Use
  Company Number: US200704001291

PATIENT
  Age: 76 Year
  Sex: Female
  Weight: 112.5 kg

DRUGS (7)
  1. BYETTA [Suspect]
     Indication: TYPE 2 DIABETES MELLITUS
     Dosage: 5 UG, SUBCUTANEOUS, 10 UG, 2/D, SUBCUTANEOUS
     Route: 058
     Dates: start: 20060901, end: 20070101
  2. BYETTA [Suspect]
     Indication: TYPE 2 DIABETES MELLITUS
     Dosage: 5 UG, SUBCUTANEOUS, 10 UG, 2/D, SUBCUTANEOUS
     Route: 058
     Dates: start: 20070101
  3. EXENATIDE 5 MCG PEN, DISPOSABLE DEVICE (EXENATIDE PEN (5 MCG)) PEN, DI [Concomitant]
  4. EXENATIDE 10MCG PEN, DISPOSABLE DEVICE (EXENATIDE PEN (10MCG)) PEN, DI [Concomitant]
  5. EXENATIDE 10MCG PEN, DISPOSABLE DEVICE (EXENATIDE PEN (10MCG)) PEN, DI [Concomitant]
  6. ACTOS/01460201/ (PIOGLITAZONE) [Concomitant]
  7. LANTUS [Concomitant]

REACTIONS (2)
  - DYSPEPSIA [None]
  - REGURGITATION [None]
